FAERS Safety Report 18195424 (Version 10)
Quarter: 2023Q1

REPORT INFORMATION
  Report Type: Report from Study
  Country: PL (occurrence: PL)
  Receive Date: 20200825
  Receipt Date: 20230125
  Transmission Date: 20230418
  Serious: Yes (Hospitalization, Other)
  Sender: FDA-Public Use
  Company Number: NVSC2020PL230072

PATIENT
  Age: 60 Year
  Sex: Female
  Weight: 91 kg

DRUGS (4)
  1. RIBOCICLIB [Suspect]
     Active Substance: RIBOCICLIB
     Indication: Breast cancer
     Dosage: 400 MG, DAILY
     Route: 048
     Dates: start: 20200310, end: 20200720
  2. EUTHYROX [Concomitant]
     Active Substance: LEVOTHYROXINE SODIUM
     Indication: Hypothyroidism
     Dosage: 37.5 MG
     Route: 065
     Dates: start: 2015
  3. TELMISARTAN [Concomitant]
     Active Substance: TELMISARTAN
     Indication: Hypertension
     Dosage: 40 MG
     Route: 065
     Dates: start: 2015
  4. HEPA-MERZ [Concomitant]
     Indication: Prophylaxis
     Dosage: 3X1 TAB
     Route: 065
     Dates: start: 20200630

REACTIONS (1)
  - Liver injury [Recovered/Resolved with Sequelae]

NARRATIVE: CASE EVENT DATE: 20200818
